FAERS Safety Report 25404503 (Version 3)
Quarter: 2025Q3

REPORT INFORMATION
  Report Type: Spontaneous
  Country: JP (occurrence: JP)
  Receive Date: 20250606
  Receipt Date: 20250702
  Transmission Date: 20251021
  Serious: No
  Sender: CSL BEHRING
  Company Number: JP-BEH-2025208606

PATIENT
  Age: 7 Decade
  Sex: Male

DRUGS (3)
  1. KORSUVA [Suspect]
     Active Substance: DIFELIKEFALIN ACETATE
     Indication: Pruritus
     Route: 042
     Dates: start: 20250430, end: 20250430
  2. ERYTHROPOIETIN [Concomitant]
     Active Substance: ERYTHROPOIETIN
  3. OXAROL [Concomitant]
     Active Substance: MAXACALCITOL

REACTIONS (1)
  - Hot flush [Recovered/Resolved]

NARRATIVE: CASE EVENT DATE: 20250430
